FAERS Safety Report 8990587 (Version 2)
Quarter: 2012Q4

REPORT INFORMATION
  Report Type: Report from Study
  Country: CA (occurrence: CA)
  Receive Date: 20121228
  Receipt Date: 20121228
  Transmission Date: 20130627
  Serious: Yes (Hospitalization, Other)
  Sender: FDA-Public Use
  Company Number: CA-ROCHE-1172606

PATIENT
  Age: 45 Year
  Sex: Female
  Weight: 64.07 kg

DRUGS (1)
  1. OMALIZUMAB [Suspect]
     Indication: ASTHMA
     Route: 058
     Dates: start: 20070827

REACTIONS (12)
  - Hypophagia [Unknown]
  - Headache [Unknown]
  - Concussion [Unknown]
  - Oesophageal pain [Recovering/Resolving]
  - Head injury [Unknown]
  - Movement disorder [Unknown]
  - Malaise [Unknown]
  - Influenza [Unknown]
  - Asthma [Unknown]
  - Blood magnesium decreased [Unknown]
  - Peak expiratory flow rate decreased [Unknown]
  - Nausea [Unknown]
